FAERS Safety Report 18988284 (Version 5)
Quarter: 2021Q2

REPORT INFORMATION
  Report Type: Report from Study
  Country: US (occurrence: US)
  Receive Date: 20210309
  Receipt Date: 20210625
  Transmission Date: 20210717
  Serious: Yes (Hospitalization, Other)
  Sender: FDA-Public Use
  Company Number: US-BAYER-2021-096339

PATIENT
  Age: 46 Year
  Sex: Female

DRUGS (2)
  1. VITRAKVI [Suspect]
     Active Substance: LAROTRECTINIB
     Indication: THYROID CANCER
  2. VITRAKVI [Suspect]
     Active Substance: LAROTRECTINIB
     Indication: THYROID CANCER
     Dosage: 100 MG, BID
     Route: 048
     Dates: start: 20210210

REACTIONS (15)
  - Surgery [Unknown]
  - Multiple fractures [Unknown]
  - Arthralgia [None]
  - Discomfort [Unknown]
  - Shoulder operation [Unknown]
  - Hemianaesthesia [None]
  - Alopecia [Unknown]
  - Hot flush [Not Recovered/Not Resolved]
  - Thyroid cancer [None]
  - Fatigue [Unknown]
  - Hospitalisation [None]
  - Regurgitation [Unknown]
  - Asthenia [Unknown]
  - Feeling abnormal [Unknown]
  - Adverse event [None]

NARRATIVE: CASE EVENT DATE: 2021
